FAERS Safety Report 9464319 (Version 1)
Quarter: 2013Q3

REPORT INFORMATION
  Report Type: Spontaneous
  Country: DZ (occurrence: DZ)
  Receive Date: 20130819
  Receipt Date: 20130819
  Transmission Date: 20140515
  Serious: Yes (Hospitalization)
  Sender: FDA-Public Use
  Company Number: DZ-B.I. PHARMACEUTICALS,INC./RIDGEFIELD-2013-BI-25327DZ

PATIENT
  Sex: 0

DRUGS (1)
  1. MICARDIS [Suspect]

REACTIONS (1)
  - Balance disorder [Unknown]
